FAERS Safety Report 5083225-4 (Version None)
Quarter: 2006Q3

REPORT INFORMATION
  Report Type: 
  Country: None (occurrence: None)
  Receive Date: 20060816
  Receipt Date: 20060804
  Transmission Date: 20061208
  Serious: Yes (Other)
  Sender: FDA-Public Use
  Company Number: CHPA2006US07804

PATIENT
  Age: 36 Year
  Sex: Male
  Weight: 86.2 kg

DRUGS (1)
  1. CVS (NCH) (NICOTINE) TRANS-THERAPEUTIC SYSTEM [Suspect]
     Indication: SMOKING CESSATION THERAPY
     Dosage: 14 MG, QD, TRANSDERMAL
     Route: 062
     Dates: start: 20060804, end: 20060804

REACTIONS (3)
  - APPLICATION SITE PAIN [None]
  - HYPOAESTHESIA [None]
  - PAIN IN EXTREMITY [None]
